FAERS Safety Report 17693029 (Version 2)
Quarter: 2020Q3

REPORT INFORMATION
  Report Type: Spontaneous
  Country: US (occurrence: US)
  Receive Date: 20200422
  Receipt Date: 20200831
  Transmission Date: 20201102
  Serious: Yes (Other)
  Sender: FDA-Public Use
  Company Number: US-PFIZER INC-2020158944

PATIENT
  Age: 62 Year
  Sex: Female

DRUGS (1)
  1. LYRICA [Suspect]
     Active Substance: PREGABALIN
     Dosage: UNK

REACTIONS (7)
  - Cough [Unknown]
  - Bipolar disorder [Unknown]
  - Hypersensitivity [Unknown]
  - Dyspnoea [Unknown]
  - Bladder disorder [Unknown]
  - Ankle fracture [Unknown]
  - Rhinorrhoea [Unknown]
